FAERS Safety Report 8538945-3 (Version None)
Quarter: 2012Q3

REPORT INFORMATION
  Report Type: 
  Country: None (occurrence: None)
  Receive Date: 20120713
  Receipt Date: 20120531
  Transmission Date: 20120928
  Serious: No
  Sender: FDA-Public Use
  Company Number: NXG-12-003

PATIENT
  Sex: Female

DRUGS (1)
  1. POLYETHYLENE GLYCOL 3350 [Suspect]
     Indication: CONSTIPATION
     Dosage: 17G/DAY

REACTIONS (1)
  - VOMITING [None]
